FAERS Safety Report 8150336-6 (Version None)
Quarter: 2012Q1

REPORT INFORMATION
  Report Type: 
  Country: None (occurrence: None)
  Receive Date: 20120220
  Receipt Date: 20120216
  Transmission Date: 20120608
  Serious: Yes (Other)
  Sender: FDA-Public Use
  Company Number: IT-PFIZER INC-2012042663

PATIENT
  Sex: Female

DRUGS (1)
  1. SOLU-MEDROL [Suspect]
     Dosage: UNK

REACTIONS (2)
  - EMBOLISM [None]
  - MALAISE [None]
